FAERS Safety Report 5957215-0 (Version None)
Quarter: 2008Q4

REPORT INFORMATION
  Report Type: 
  Country: None (occurrence: None)
  Receive Date: 20081106
  Receipt Date: 20071121
  Transmission Date: 20090506
  Serious: Yes (Other)
  Sender: FDA-Public Use
  Company Number: US200711005108

PATIENT
  Age: 28 Year
  Sex: Male

DRUGS (4)
  1. PROZAC [Suspect]
     Dosage: 40 MG, ORAL
     Route: 048
  2. CLOZAPINE [Concomitant]
  3. ARIPIPRAZOLE [Concomitant]
  4. LITHIUM CARBONATE [Concomitant]

REACTIONS (1)
  - GRAND MAL CONVULSION [None]
